FAERS Safety Report 16764391 (Version 2)
Quarter: 2019Q3

REPORT INFORMATION
  Report Type: Report from Study
  Country: ID (occurrence: ID)
  Receive Date: 20190902
  Receipt Date: 20190916
  Transmission Date: 20191005
  Serious: Yes (Death, Hospitalization)
  Sender: FDA-Public Use
  Company Number: PHHY2019ID202953

PATIENT
  Age: 55 Year
  Sex: Male

DRUGS (1)
  1. GLIVEC [Suspect]
     Active Substance: IMATINIB MESYLATE
     Indication: GASTROINTESTINAL STROMAL TUMOUR
     Dosage: 600 MG (100X6), DAILY
     Route: 065
     Dates: start: 2008, end: 20190824

REACTIONS (4)
  - Dyspnoea [Fatal]
  - Defaecation disorder [Fatal]
  - Dehydration [Fatal]
  - Metastases to kidney [Fatal]

NARRATIVE: CASE EVENT DATE: 20190824
